FAERS Safety Report 9311248 (Version 1)
Quarter: 2013Q2

REPORT INFORMATION
  Report Type: Spontaneous
  Country: US (occurrence: US)
  Receive Date: 20130528
  Receipt Date: 20130528
  Transmission Date: 20140414
  Serious: No
  Sender: FDA-Public Use
  Company Number: US-009507513-1305USA000137

PATIENT
  Sex: Male

DRUGS (1)
  1. AFRIN [Suspect]
     Indication: NASAL POLYPS
     Dosage: UNK, UNKNOWN
     Route: 045
     Dates: start: 20130414

REACTIONS (4)
  - Dyspnoea [Unknown]
  - Adverse event [Unknown]
  - Off label use [Unknown]
  - Wrong technique in drug usage process [Unknown]
